FAERS Safety Report 10374628 (Version 1)
Quarter: 2014Q3

REPORT INFORMATION
  Report Type: Spontaneous
  Country: US (occurrence: US)
  Receive Date: 20140811
  Receipt Date: 20140811
  Transmission Date: 20150326
  Serious: Yes (Other)
  Sender: FDA-Public Use
  Company Number: US-TEVA-446398USA

PATIENT
  Sex: Female

DRUGS (2)
  1. METOCLOPRAMIDE. [Suspect]
     Active Substance: METOCLOPRAMIDE
  2. REGLAN [Suspect]
     Active Substance: METOCLOPRAMIDE HYDROCHLORIDE

REACTIONS (6)
  - Restlessness [Unknown]
  - Tardive dyskinesia [Unknown]
  - Eye movement disorder [Unknown]
  - Anxiety [Unknown]
  - Muscle rigidity [Unknown]
  - Dyskinesia [Unknown]
